FAERS Safety Report 5284207-X (Version None)
Quarter: 2007Q1

REPORT INFORMATION
  Report Type: 
  Country: None (occurrence: None)
  Receive Date: 20070328
  Receipt Date: 20070313
  Transmission Date: 20070707
  Serious: Yes (Other)
  Sender: FDA-Public Use
  Company Number: 2007BI003867

PATIENT
  Sex: Female

DRUGS (5)
  1. NATALIZUMAB [Suspect]
     Indication: MULTIPLE SCLEROSIS
     Dosage: 300 MG;QM; IV
     Route: 042
     Dates: start: 20060101, end: 20070114
  2. NATALIZUMAB [Suspect]
     Indication: MULTIPLE SCLEROSIS
     Dates: start: 20050101, end: 20050101
  3. PROVIGIL [Concomitant]
  4. BACLOFEN [Concomitant]
  5. ZANAFLEX [Concomitant]

REACTIONS (7)
  - BACK DISORDER [None]
  - DRUG HYPERSENSITIVITY [None]
  - DRUG SPECIFIC ANTIBODY PRESENT [None]
  - INFUSION RELATED REACTION [None]
  - MUSCLE SPASMS [None]
  - PYREXIA [None]
  - TACHYCARDIA [None]
